FAERS Safety Report 8628885 (Version 2)
Quarter: 2014Q2

REPORT INFORMATION
  Report Type: Spontaneous
  Country: US (occurrence: US)
  Receive Date: 20120621
  Receipt Date: 20140429
  Transmission Date: 20141212
  Serious: Yes (Other)
  Sender: FDA-Public Use
  Company Number: CG-ASTRAZENECA-2012SE38160

PATIENT
  Age: 24 Year
  Sex: Male
  Weight: 64 kg

DRUGS (10)
  1. NEXIUM [Suspect]
     Indication: GASTROOESOPHAGEAL REFLUX DISEASE
     Route: 048
     Dates: start: 2006, end: 2009
  2. NEXIUM [Suspect]
     Indication: GASTROOESOPHAGEAL REFLUX DISEASE
     Route: 048
  3. NEXIUM [Suspect]
     Indication: GASTROOESOPHAGEAL REFLUX DISEASE
     Route: 048
     Dates: end: 201402
  4. PRILOSEC [Suspect]
     Indication: GASTROOESOPHAGEAL REFLUX DISEASE
     Route: 048
  5. PRILOSEC [Suspect]
     Indication: GASTROOESOPHAGEAL REFLUX DISEASE
     Dosage: UNKNOWN BID
     Route: 048
  6. PREVACID [Concomitant]
     Indication: GASTROOESOPHAGEAL REFLUX DISEASE
     Route: 048
     Dates: start: 201402
  7. LORTAB [Concomitant]
     Indication: PAIN
     Dosage: 7.5 MG, Q4H PRN
     Route: 048
     Dates: start: 20140415, end: 20140421
  8. PAXIL [Concomitant]
     Indication: DEPRESSION
     Dates: start: 201402
  9. BACTRIM GENERIC [Concomitant]
     Indication: ANTIBIOTIC THERAPY
     Route: 048
     Dates: start: 20140414
  10. PHENERGEN [Concomitant]
     Indication: NAUSEA
     Route: 048
     Dates: start: 201312

REACTIONS (10)
  - Abdominal discomfort [Unknown]
  - Gastrointestinal disorder [Unknown]
  - Hyperchlorhydria [Unknown]
  - Weight decreased [Unknown]
  - Diarrhoea [Unknown]
  - Nausea [Unknown]
  - Vomiting [Unknown]
  - Drug dose omission [Unknown]
  - Drug ineffective [Unknown]
  - Off label use [Unknown]
